FAERS Safety Report 12111689 (Version 1)
Quarter: 2016Q1

REPORT INFORMATION
  Report Type: Spontaneous
  Country: US (occurrence: US)
  Receive Date: 20160224
  Receipt Date: 20160224
  Transmission Date: 20160526
  Serious: No
  Sender: FDA-Public Use
  Company Number: US-JAZZ-2015-US-006780

PATIENT
  Age: 52 Year
  Sex: Female

DRUGS (12)
  1. PRIALT [Suspect]
     Active Substance: ZICONOTIDE ACETATE
     Indication: COMPLEX REGIONAL PAIN SYNDROME
     Dosage: 0.065 ?G, QH
     Route: 037
  2. BACLOFEN. [Suspect]
     Active Substance: BACLOFEN
     Indication: COMPLEX REGIONAL PAIN SYNDROME
     Dosage: 19.625 ?G, QH
     Route: 037
  3. BUPIVACAINE HYDROCHLORIDE. [Suspect]
     Active Substance: BUPIVACAINE HYDROCHLORIDE
     Indication: MUSCLE SPASTICITY
     Dosage: UNK MG, UNK
     Route: 037
  4. CLONIDINE. [Suspect]
     Active Substance: CLONIDINE
     Indication: COMPLEX REGIONAL PAIN SYNDROME
     Dosage: 6.542 ?G, QH
     Route: 037
  5. PRIALT [Suspect]
     Active Substance: ZICONOTIDE ACETATE
     Indication: MUSCLE SPASTICITY
     Dosage: 0.083 ?G, QH
     Route: 037
  6. PRIALT [Suspect]
     Active Substance: ZICONOTIDE ACETATE
     Dosage: 0.017 ?G, QH
     Route: 037
  7. BUPIVACAINE HYDROCHLORIDE. [Suspect]
     Active Substance: BUPIVACAINE HYDROCHLORIDE
     Dosage: UNK MG, UNK
     Route: 037
  8. BACLOFEN. [Suspect]
     Active Substance: BACLOFEN
     Indication: MUSCLE SPASTICITY
     Dosage: 10.0 ?G, QH
     Route: 037
  9. BACLOFEN. [Suspect]
     Active Substance: BACLOFEN
     Dosage: 50.0 ?G, QH
     Route: 037
  10. BUPIVACAINE HYDROCHLORIDE. [Suspect]
     Active Substance: BUPIVACAINE HYDROCHLORIDE
     Indication: COMPLEX REGIONAL PAIN SYNDROME
     Dosage: UNK MG, UNK
     Route: 037
  11. CLONIDINE. [Suspect]
     Active Substance: CLONIDINE
     Indication: MUSCLE SPASTICITY
     Dosage: 3.333 ?G, QH
     Route: 037
  12. CLONIDINE. [Suspect]
     Active Substance: CLONIDINE
     Dosage: 16.66 ?G, QH
     Route: 037

REACTIONS (1)
  - Sedation [Recovered/Resolved]

NARRATIVE: CASE EVENT DATE: 20150318
